FAERS Safety Report 6015259-7 (Version None)
Quarter: 2008Q4

REPORT INFORMATION
  Report Type: 
  Country: None (occurrence: None)
  Receive Date: 20081219
  Receipt Date: 20081219
  Transmission Date: 20090506
  Serious: Yes (Death)
  Sender: FDA-Public Use
  Company Number: None

PATIENT
  Age: 84 Year
  Sex: Male
  Weight: 77.6 kg

DRUGS (15)
  1. RISPERIDONE [Suspect]
     Indication: DEMENTIA ALZHEIMER'S TYPE
     Dosage: 0.5MG PO AT BEDTIME
     Route: 048
     Dates: start: 20070807, end: 20071005
  2. RISPERIDONE [Suspect]
     Indication: DEMENTIA ALZHEIMER'S TYPE
     Dosage: 0.5MG PO AT BEDTIME
     Route: 048
     Dates: start: 20071005
  3. ASPIRIN [Concomitant]
  4. CIPRO [Concomitant]
  5. CITALOPRAM [Concomitant]
  6. DONEPEZIL HCL [Concomitant]
  7. FUROSEMIDE [Concomitant]
  8. LISINOPRIL [Concomitant]
  9. PENTOXIFYLLINE [Concomitant]
  10. POTASSIUM CHLORIDE [Concomitant]
  11. SIMVASTATIN [Concomitant]
  12. TERBINAFINE HCL [Concomitant]
  13. TRAZODONE HCL [Concomitant]
  14. FLUNISOLIDE NASAL [Concomitant]
  15. ACETAMINOPHEN AND HYDROCODONE BITARTRATE [Concomitant]

REACTIONS (7)
  - ANAEMIA [None]
  - CARDIAC FAILURE CONGESTIVE [None]
  - CORONARY ARTERY DISEASE [None]
  - DRUG EFFECT DECREASED [None]
  - GENERAL PHYSICAL CONDITION ABNORMAL [None]
  - HYPOPHAGIA [None]
  - PERIPHERAL VASCULAR DISORDER [None]
